FAERS Safety Report 9642883 (Version 1)
Quarter: 2013Q4

REPORT INFORMATION
  Report Type: Spontaneous
  Country: GB (occurrence: GB)
  Receive Date: 20131024
  Receipt Date: 20131024
  Transmission Date: 20140711
  Serious: Yes (Hospitalization)
  Sender: FDA-Public Use
  Company Number: GB-NOVOPROD-390181

PATIENT
  Sex: Female

DRUGS (1)
  1. INSULATARD [Suspect]
     Indication: TYPE 2 DIABETES MELLITUS
     Dosage: 10 IU, BID
     Route: 065

REACTIONS (2)
  - Urinary tract infection [Unknown]
  - Blood glucose increased [Unknown]
